FAERS Safety Report 6706907-4 (Version None)
Quarter: 2010Q2

REPORT INFORMATION
  Report Type: 
  Country: None (occurrence: None)
  Receive Date: 20100430
  Receipt Date: 20100430
  Transmission Date: 20101027
  Serious: Yes (Hospitalization, Other)
  Sender: FDA-Public Use
  Company Number: None

PATIENT
  Age: 52 Year
  Sex: Female
  Weight: 75.2971 kg

DRUGS (5)
  1. TAXOL [Suspect]
     Indication: BREAST CANCER STAGE III
     Dosage: 313MG IV DRIP
     Route: 041
     Dates: start: 20100303, end: 20100303
  2. ADRIAMYCIN PFS [Suspect]
     Indication: BREAST CANCER STAGE III
     Dosage: 108MG IV DRIP
     Route: 041
     Dates: start: 20100106, end: 20100216
  3. DOXORUBICIN HCL [Concomitant]
  4. CYCLOPHOSPHAMIDE [Concomitant]
  5. PACLITAXEL [Concomitant]

REACTIONS (3)
  - MUSCULOSKELETAL PAIN [None]
  - PNEUMONITIS [None]
  - PYREXIA [None]
